FAERS Safety Report 4798285-5 (Version None)
Quarter: 2005Q4

REPORT INFORMATION
  Report Type: 
  Country: None (occurrence: None)
  Receive Date: 20051014
  Receipt Date: 20051005
  Transmission Date: 20060501
  Serious: Yes (Other)
  Sender: FDA-Public Use
  Company Number: PHBS2005BR14750

PATIENT
  Age: 30 Year
  Sex: Female

DRUGS (4)
  1. EVANOR-D [Concomitant]
     Indication: CONTRACEPTION
     Dosage: UNK, QD
     Dates: start: 20030101
  2. MALVATRICIN [Concomitant]
     Dosage: UNK, QD
     Route: 048
     Dates: start: 20050928, end: 20051003
  3. DICLOFENAC SODIUM [Suspect]
     Indication: GINGIVITIS
     Dosage: 50 MG, QD
     Route: 048
     Dates: start: 20050928, end: 20051004
  4. OXYGENATED WATER [Concomitant]
     Dosage: UNK, QD
     Route: 048
     Dates: start: 20050928, end: 20051003

REACTIONS (3)
  - ABDOMINAL PAIN [None]
  - ANAL FISSURE [None]
  - HAEMATOCHEZIA [None]
